FAERS Safety Report 9162600 (Version 2)
Quarter: 2013Q1

REPORT INFORMATION
  Report Type: Spontaneous
  Country: US (occurrence: None)
  Receive Date: 20130312
  Receipt Date: 20130327
  Transmission Date: 20140127
  Serious: Yes (Death)
  Sender: FDA-Public Use
  Company Number: FK201300716

PATIENT
  Age: 70 Year
  Sex: Male
  Weight: 116 kg

DRUGS (14)
  1. MIDAZOLAM HYDROCHLORIDE INJECTION (MIDAZOLAM HYDROCHLORIDE) (MIDAZOLAM HYDROCHLORIDE) [Suspect]
     Indication: PRODUCT USED FOR UNKNOWN INDICATION
     Route: 042
     Dates: start: 20130214, end: 20130217
  2. FENTANYL [Suspect]
     Indication: PRODUCT USED FOR UNKNOWN INDICATION
     Dates: start: 20130214, end: 20130217
  3. APAP (PARACETAMOL) (PARACETAMOL) [Concomitant]
  4. ASCORBIC ACID (ASCORBIC ACID) (ASCORBIC ACID) [Concomitant]
  5. CEFAZOLIN (CEFAZOLIN) (CEFAZOLIN) [Concomitant]
  6. CHLORHEXIDINE (CHLORHEXIDINE) (CHLORHEXIDINE) [Concomitant]
  7. CLONIDINE (CLONIDINE) (CLONIDINE) [Concomitant]
  8. FAMOTIDINE (FAMOTIDINE) (FAMOTIDINE) [Concomitant]
  9. FENTANYL (FENTANYL) [Concomitant]
  10. INSULIN ASPARTE (INSULIN ASPART) (INSULIN ASPART) [Concomitant]
  11. METOPROLOL (METOPROLOL) (METOPROLOL) [Concomitant]
  12. MVI (MVI) (MVI) [Concomitant]
  13. NIFEDIPINE (NIFEDIPINE) (NIFEDIPINE) [Concomitant]
  14. PHENYTOIN (PHENYTOIN) (PHENYTOIN) [Concomitant]

REACTIONS (5)
  - Pyrexia [None]
  - Product contamination [None]
  - Infusion related reaction [None]
  - Bradycardia [None]
  - Pulseless electrical activity [None]
